FAERS Safety Report 7057407-6 (Version None)
Quarter: 2010Q4

REPORT INFORMATION
  Report Type: 
  Country: None (occurrence: None)
  Receive Date: 20101022
  Receipt Date: 20101013
  Transmission Date: 20110411
  Serious: Yes (Hospitalization)
  Sender: FDA-Public Use
  Company Number: FR-ASTRAZENECA-2010SE48884

PATIENT
  Age: 21454 Day
  Sex: Male

DRUGS (4)
  1. NEXIUM [Suspect]
     Route: 048
     Dates: end: 20100801
  2. CELEBREX [Suspect]
     Indication: NECK PAIN
     Route: 048
     Dates: end: 20100801
  3. MIOREL [Suspect]
     Indication: NECK PAIN
     Route: 048
     Dates: end: 20100801
  4. DOLIPRANE [Suspect]
     Indication: NECK PAIN
     Route: 048
     Dates: end: 20100801

REACTIONS (1)
  - TOXIC SKIN ERUPTION [None]
